FAERS Safety Report 4263697-5 (Version None)
Quarter: 2004Q1

REPORT INFORMATION
  Report Type: 
  Country: None (occurrence: None)
  Receive Date: 20040102
  Receipt Date: 20031222
  Transmission Date: 20041129
  Serious: Yes (Hospitalization, Disabling)
  Sender: FDA-Public Use
  Company Number: GBWYE486430DEC03

PATIENT
  Age: 30 Year
  Sex: Female

DRUGS (3)
  1. EFFEXOR [Suspect]
     Indication: DEPRESSION
     Dosage: 225 MG, ORAL; UNKNOWN REDUCED DOSE
     Route: 048
     Dates: start: 20021218, end: 20030101
  2. EFFEXOR [Suspect]
     Indication: DEPRESSION
     Dosage: 225 MG, ORAL; UNKNOWN REDUCED DOSE
     Route: 048
     Dates: start: 20030101
  3. MARVELON (DESOGESTREL / ETHINYLESTRADIOL) [Concomitant]

REACTIONS (5)
  - ANXIETY [None]
  - CRYING [None]
  - DRUG WITHDRAWAL SYNDROME [None]
  - INSOMNIA [None]
  - VOMITING [None]
